FAERS Safety Report 7353588-5 (Version None)
Quarter: 2011Q1

REPORT INFORMATION
  Report Type: 
  Country: None (occurrence: None)
  Receive Date: 20110315
  Receipt Date: 20110304
  Transmission Date: 20110831
  Serious: Yes (Other)
  Sender: FDA-Public Use
  Company Number: FR-SANOFI-AVENTIS-2011SA013594

PATIENT
  Age: 69 Year
  Sex: Female
  Weight: 54 kg

DRUGS (3)
  1. PREVISCAN [Suspect]
     Route: 048
     Dates: start: 20101201, end: 20110209
  2. MULTAQ [Suspect]
     Route: 048
     Dates: start: 20101205, end: 20101215
  3. RYTHMOL [Suspect]
     Route: 048
     Dates: start: 20101216, end: 20110209

REACTIONS (1)
  - MIXED LIVER INJURY [None]
